FAERS Safety Report 21951672 (Version 10)
Quarter: 2025Q4

REPORT INFORMATION
  Report Type: Spontaneous
  Country: US (occurrence: US)
  Receive Date: 20230203
  Receipt Date: 20251009
  Transmission Date: 20260117
  Serious: Yes (Hospitalization, Other)
  Sender: PFIZER
  Company Number: US-PFIZER INC-PV202300020344

PATIENT
  Age: 62 Year
  Sex: Female
  Weight: 91.61 kg

DRUGS (6)
  1. XELJANZ XR [Suspect]
     Active Substance: TOFACITINIB CITRATE
     Indication: Rheumatoid arthritis
     Dosage: 11 MG, 1X/DAY (IN MORNING)
     Route: 048
     Dates: start: 20191029, end: 20250807
  2. METFORMIN [Concomitant]
     Active Substance: METFORMIN HYDROCHLORIDE
     Dosage: UNK
  3. OLMESARTAN [Concomitant]
     Active Substance: OLMESARTAN
     Indication: Blood pressure abnormal
     Dosage: 20 MG, 1X/DAY (START: ON FOR YEARS)
     Route: 048
  4. AMLODIPINE [Concomitant]
     Active Substance: AMLODIPINE BESYLATE
     Indication: Blood pressure abnormal
     Dosage: ONE TABLET ONCE A DAY(START: ON FOR YEARS)
     Route: 048
  5. LEFLUNOMIDE [Concomitant]
     Active Substance: LEFLUNOMIDE
     Indication: Arthritis
     Dosage: ONE TABLET ONCE A DAY
     Route: 048
     Dates: start: 2020
  6. LOSARTAN [Concomitant]
     Active Substance: LOSARTAN
     Indication: Blood pressure abnormal
     Dosage: UNK

REACTIONS (7)
  - Thrombosis [Recovering/Resolving]
  - Lumbar spinal stenosis [Unknown]
  - Type 2 diabetes mellitus [Not Recovered/Not Resolved]
  - Pulmonary embolism [Recovering/Resolving]
  - Blood cholesterol increased [Not Recovered/Not Resolved]
  - Swelling [Recovering/Resolving]
  - Heart rate abnormal [Unknown]

NARRATIVE: CASE EVENT DATE: 20220301
